FAERS Safety Report 21996388 (Version 1)
Quarter: 2023Q1

REPORT INFORMATION
  Report Type: Spontaneous
  Country: US (occurrence: US)
  Receive Date: 20230215
  Receipt Date: 20230215
  Transmission Date: 20230418
  Serious: No
  Sender: FDA-Public Use
  Company Number: US-JUBILANT CADISTA PHARMACEUTICALS-2022JUB00061

PATIENT
  Sex: Female
  Weight: 66.213 kg

DRUGS (9)
  1. VALSARTAN [Suspect]
     Active Substance: VALSARTAN
     Indication: Hypertension
     Dosage: 160 MG, 1X/DAY
     Route: 048
     Dates: start: 20220228, end: 20220313
  2. VALSARTAN [Suspect]
     Active Substance: VALSARTAN
     Dosage: 80 MG, 1X/DAY
     Route: 048
     Dates: start: 202203
  3. HYDROCHLOROTHIAZIDE [Concomitant]
     Active Substance: HYDROCHLOROTHIAZIDE
  4. LIPITOR [Concomitant]
     Active Substance: ATORVASTATIN CALCIUM
  5. SYNTHROID [Concomitant]
     Active Substance: LEVOTHYROXINE SODIUM
  6. UNSPECIFIED WEIGHT LOSS THING [Concomitant]
     Dosage: UNK
     Dates: end: 2022
  7. UNSPECIFIED OTHER JUNK [Concomitant]
     Dosage: UNK
     Dates: end: 2022
  8. XANAX [Concomitant]
     Active Substance: ALPRAZOLAM
  9. AMBIEN [Concomitant]
     Active Substance: ZOLPIDEM TARTRATE

REACTIONS (8)
  - Malaise [Recovered/Resolved]
  - Palpitations [Recovered/Resolved]
  - Dizziness postural [Recovered/Resolved]
  - Therapeutic product effect variable [Recovered/Resolved]
  - Hypotension [Recovered/Resolved]
  - Fatigue [Recovered/Resolved]
  - Intentional dose omission [Recovered/Resolved]
  - Product substitution issue [Recovered/Resolved]

NARRATIVE: CASE EVENT DATE: 20220101
